FAERS Safety Report 5443921-3 (Version None)
Quarter: 2007Q3

REPORT INFORMATION
  Report Type: 
  Country: None (occurrence: None)
  Receive Date: 20070905
  Receipt Date: 20070824
  Transmission Date: 20080115
  Serious: Yes (Hospitalization)
  Sender: FDA-Public Use
  Company Number: FR-BOEHRINGER INGELHEIM PHARMACEUTICALS, INC.-2007-FF-00864FF

PATIENT
  Age: 75 Year
  Sex: Male

DRUGS (2)
  1. SIFROL [Suspect]
     Indication: PARKINSON'S DISEASE
     Route: 048
  2. MODOPAR [Concomitant]

REACTIONS (1)
  - RENAL FAILURE ACUTE [None]
